FAERS Safety Report 6023101-3 (Version None)
Quarter: 2008Q4

REPORT INFORMATION
  Report Type: 
  Country: None (occurrence: None)
  Receive Date: 20081230
  Receipt Date: 20061211
  Transmission Date: 20090506
  Serious: No
  Sender: FDA-Public Use
  Company Number: US-ABBOTT-08P-163-0462817-00

PATIENT
  Sex: Male

DRUGS (1)
  1. OMNICEF [Suspect]
     Indication: EAR INFECTION

REACTIONS (3)
  - EAR INFECTION [None]
  - OTITIS MEDIA ACUTE [None]
  - PYREXIA [None]
